FAERS Safety Report 8979396 (Version 2)
Quarter: 2013Q3

REPORT INFORMATION
  Report Type: Report from Study
  Country: US (occurrence: US)
  Receive Date: 20121221
  Receipt Date: 20130923
  Transmission Date: 20140515
  Serious: Yes (Hospitalization)
  Sender: FDA-Public Use
  Company Number: US-PFIZER INC-2012318660

PATIENT
  Sex: Male

DRUGS (8)
  1. SUNITINIB MALATE [Suspect]
     Indication: PROSTATE CANCER METASTATIC
     Dosage: 37.5 MG, DAILY
     Route: 048
     Dates: start: 20120928, end: 20121011
  2. ABIRATERONE ACETATE [Suspect]
     Indication: PROSTATE CANCER METASTATIC
     Dosage: 1000 MG, DAILY
     Route: 048
     Dates: start: 20111218
  3. CENTRUM SILVER [Concomitant]
     Dosage: 1 TABLET, DAILY
     Route: 048
  4. CALTRATE [Concomitant]
     Dosage: 600 MG, DAILY
     Route: 048
  5. X-GEVA [Concomitant]
     Dosage: 120 MG, MONTHLY
     Route: 058
  6. ELIGARD [Concomitant]
     Dosage: 45 MG, EVERY 6 MONTHS
     Route: 030
  7. PREDNISONE [Concomitant]
     Dosage: 5 MG, 2X/DAY
     Route: 048
  8. NORVASC [Concomitant]
     Dosage: 5 MG, DAILY
     Route: 048

REACTIONS (1)
  - Pneumonia [Unknown]
